FAERS Safety Report 23621827 (Version 1)
Quarter: 2024Q1

REPORT INFORMATION
  Report Type: Spontaneous
  Country: US (occurrence: US)
  Receive Date: 20240312
  Receipt Date: 20240312
  Transmission Date: 20240410
  Serious: No
  Sender: FDA-Public Use
  Company Number: US-Mission Pharmacal Company-2154286

PATIENT
  Age: 72 Year
  Sex: Male

DRUGS (8)
  1. THIOLA EC [Suspect]
     Active Substance: TIOPRONIN
     Route: 048
     Dates: start: 20190901
  2. AMLODIPINE [Concomitant]
     Active Substance: AMLODIPINE BESYLATE
  3. OLMESARTAN [Concomitant]
     Active Substance: OLMESARTAN
  4. HYDROCHLOROTHIAZIDE [Concomitant]
     Active Substance: HYDROCHLOROTHIAZIDE
  5. POTASSIUM CHLORIDE [Concomitant]
     Active Substance: POTASSIUM CHLORIDE
  6. ROSUVASTATIN [Concomitant]
     Active Substance: ROSUVASTATIN
  7. ATACAND [Concomitant]
     Active Substance: CANDESARTAN CILEXETIL
  8. NADOLOL [Concomitant]
     Active Substance: NADOLOL

REACTIONS (1)
  - Hypokalaemia [Unknown]
